FAERS Safety Report 5696440-3 (Version None)
Quarter: 2008Q2

REPORT INFORMATION
  Report Type: 
  Country: None (occurrence: None)
  Receive Date: 20080408
  Receipt Date: 20080327
  Transmission Date: 20081010
  Serious: Yes (Other)
  Sender: FDA-Public Use
  Company Number: US-ABBOTT-08P-163-0444193-00

PATIENT
  Age: 60 Year
  Sex: Male

DRUGS (11)
  1. RITONAVIR [Suspect]
     Indication: HIV INFECTION
     Dosage: NOT REPORTED
     Dates: start: 20050401
  2. LOPINAVIR AND RITONAVIR [Suspect]
     Indication: HIV INFECTION
     Dosage: NOT REPORTED
     Dates: start: 20040101, end: 20050401
  3. FLUTICASONE [Interacting]
     Indication: ASTHMA
     Route: 055
     Dates: start: 20050701, end: 20070101
  4. ATAZANAVIR SULFATE [Interacting]
     Indication: HIV INFECTION
     Dosage: NOT REPORTED
     Dates: start: 20050401
  5. DIDANOSINE [Suspect]
     Indication: HIV INFECTION
     Dosage: NOT REPORTED
     Dates: start: 20040101, end: 20050401
  6. TENOFOVIR [Suspect]
     Indication: HIV INFECTION
     Dosage: NOT REPORTED
     Dates: start: 20040101, end: 20050401
  7. TENOFOVIR [Concomitant]
     Dosage: NOT REPORTED
     Dates: start: 20050401
  8. EMTRICITABINE [Concomitant]
     Indication: HIV INFECTION
     Dosage: NOT REPORTED
     Dates: start: 20050401
  9. SALMETEROL [Concomitant]
     Indication: ASTHMA
     Route: 055
     Dates: start: 20050701
  10. SOMATROPIN [Concomitant]
     Indication: HIV WASTING SYNDROME
     Dosage: NOT REPORTED
     Dates: start: 20061101, end: 20061201
  11. NANDROLONE DECANOATE [Concomitant]
     Indication: HIV WASTING SYNDROME
     Dosage: NOT REPORTED
     Dates: start: 20061101, end: 20061201

REACTIONS (4)
  - CUSHING'S SYNDROME [None]
  - DRUG INTERACTION [None]
  - DRUG RESISTANCE [None]
  - KAPOSI'S SARCOMA AIDS RELATED [None]
